FAERS Safety Report 13422417 (Version 1)
Quarter: 2017Q2

REPORT INFORMATION
  Report Type: Spontaneous
  Country: US (occurrence: US)
  Receive Date: 20170409
  Receipt Date: 20170409
  Transmission Date: 20170830
  Serious: No
  Sender: FDA-Public Use
  Company Number: None

PATIENT
  Age: 32 Year
  Sex: Female
  Weight: 103.5 kg

DRUGS (1)
  1. PROVENTIL [Suspect]
     Active Substance: ALBUTEROL
     Indication: ASTHMA
     Dates: start: 20170401

REACTIONS (3)
  - Thirst [None]
  - Somnolence [None]
  - Anxiety [None]

NARRATIVE: CASE EVENT DATE: 20170409
